FAERS Safety Report 5226113-2 (Version None)
Quarter: 2007Q1

REPORT INFORMATION
  Report Type: 
  Country: None (occurrence: None)
  Receive Date: 20070201
  Receipt Date: 20070129
  Transmission Date: 20070707
  Serious: Yes (Hospitalization)
  Sender: FDA-Public Use
  Company Number: PE-GLAXOSMITHKLINE-A0637701A

PATIENT
  Sex: Male

DRUGS (1)
  1. WELLBUTRIN [Suspect]
     Dosage: 150MG TWICE PER DAY
     Route: 048
     Dates: start: 20070115, end: 20070116

REACTIONS (7)
  - ANOREXIA [None]
  - BRONCHITIS [None]
  - CONFUSIONAL STATE [None]
  - COUGH [None]
  - HYPONATRAEMIA [None]
  - SOMNOLENCE [None]
  - TREMOR [None]
